FAERS Safety Report 10473830 (Version 1)
Quarter: 2014Q3

REPORT INFORMATION
  Report Type: Spontaneous
  Country: KE (occurrence: KE)
  Receive Date: 20140924
  Receipt Date: 20140924
  Transmission Date: 20150326
  Serious: Yes (Other)
  Sender: FDA-Public Use
  Company Number: PHHY2014KE122073

PATIENT
  Age: 40 Year
  Sex: Male

DRUGS (1)
  1. FLOTAC [Suspect]
     Active Substance: DICLOFENAC SODIUM
     Dosage: 1 DF, BID
     Route: 048

REACTIONS (1)
  - Hepatic enzyme increased [Not Recovered/Not Resolved]

NARRATIVE: CASE EVENT DATE: 20140918
